FAERS Safety Report 16222187 (Version 1)
Quarter: 2019Q2

REPORT INFORMATION
  Report Type: Spontaneous
  Country: SK (occurrence: SK)
  Receive Date: 20190422
  Receipt Date: 20190422
  Transmission Date: 20190711
  Serious: Yes (Hospitalization)
  Sender: FDA-Public Use
  Company Number: PHHY2019SK091716

PATIENT

DRUGS (2)
  1. GENTAMICIN. [Suspect]
     Active Substance: GENTAMICIN
     Indication: ENDOCARDITIS BACTERIAL
     Dosage: 240 MG, Q24H (1-0-0)
     Route: 042
     Dates: start: 20190123, end: 20190221
  2. AMPICILLIN [Suspect]
     Active Substance: AMPICILLIN
     Indication: ENDOCARDITIS BACTERIAL
     Dosage: 3 G, Q6H
     Route: 042
     Dates: start: 20190123, end: 20190221

REACTIONS (1)
  - Enterocolitis [Unknown]

NARRATIVE: CASE EVENT DATE: 20190201
